FAERS Safety Report 21928250 (Version 6)
Quarter: 2023Q1

REPORT INFORMATION
  Report Type: Report from Study
  Country: KR (occurrence: None)
  Receive Date: 20230130
  Receipt Date: 20230331
  Transmission Date: 20230417
  Serious: Yes (Hospitalization)
  Sender: FDA-Public Use
  Company Number: KR-ROCHE-3269822

PATIENT
  Age: 61 Year
  Sex: Female
  Weight: 56.4 kg

DRUGS (39)
  1. MOSUNETUZUMAB [Suspect]
     Active Substance: MOSUNETUZUMAB
     Indication: B-cell lymphoma
     Dosage: ON 05/JAN/2023 START DATE OF MOST RECENT DOSE OF MOSUNETUZUMAB PRIOR TO AE/SAE. DOSE LAST MOSUNETUZU
     Route: 058
     Dates: start: 20221117
  2. POLATUZUMAB VEDOTIN [Suspect]
     Active Substance: POLATUZUMAB VEDOTIN
     Indication: B-cell lymphoma
     Dosage: ON 05/JAN/2023 START DATE OF MOST RECENT DOSE OF POLATUZUMAB VEDOTIN PRIOR TO AE/SAE. DOSE LAST POLA
     Route: 042
     Dates: start: 20221117
  3. DICAMAX D [Concomitant]
     Indication: Systemic scleroderma
     Dosage: 1 TABLET
     Route: 048
     Dates: start: 2019, end: 20221222
  4. K-CAB [Concomitant]
     Dosage: 1 TABLET
     Route: 048
     Dates: start: 20220531, end: 20221222
  5. BARACLE [Concomitant]
     Indication: Hepatitis B core antibody positive
     Dosage: 1 TABLET
     Route: 048
     Dates: start: 2021
  6. FOLIC ACID [Concomitant]
     Active Substance: FOLIC ACID
     Dosage: 1 TABLET
     Route: 048
     Dates: start: 202107, end: 20221222
  7. EZETIMIBE [Concomitant]
     Active Substance: EZETIMIBE
     Dosage: 1 TABLET
     Route: 048
     Dates: start: 20221109, end: 20221222
  8. LIPITOR [Concomitant]
     Active Substance: ATORVASTATIN CALCIUM
     Dosage: 1 TABLET
     Route: 048
     Dates: start: 20221109, end: 20221222
  9. ACETAMINOPHEN\TRAMADOL [Concomitant]
     Active Substance: ACETAMINOPHEN\TRAMADOL
     Indication: Hydronephrosis
     Dosage: 1 TABLET
     Route: 048
     Dates: start: 20221109, end: 20221222
  10. MEGESTROL ACETATE [Concomitant]
     Active Substance: MEGESTROL ACETATE
     Dosage: 1 OTHER
     Route: 048
     Dates: start: 20221119, end: 20221222
  11. MEGESTROL ACETATE [Concomitant]
     Active Substance: MEGESTROL ACETATE
     Dosage: 1 OTHER
     Route: 048
     Dates: start: 20230203
  12. MAGNESIUM HYDROXIDE [Concomitant]
     Active Substance: MAGNESIUM HYDROXIDE
     Dosage: 1 TABLET
     Route: 048
     Dates: start: 20221119, end: 20221222
  13. TYLENOL [Concomitant]
     Active Substance: ACETAMINOPHEN
     Dosage: 1 TABLET
     Route: 048
     Dates: start: 20221125
  14. ESROBAN [Concomitant]
     Dosage: 1 OTHER
     Route: 062
     Dates: start: 20221125, end: 20230118
  15. .ALPHA.-TOCOPHEROL ACETATE\ALLANTOIN\LIDOCAINE\PREDNISOLONE [Concomitant]
     Active Substance: .ALPHA.-TOCOPHEROL ACETATE\ALLANTOIN\LIDOCAINE\PREDNISOLONE
     Dosage: 1 OTHER
     Route: 062
     Dates: start: 20221125, end: 20230118
  16. TANTUM [Concomitant]
     Active Substance: BENZYDAMINE HYDROCHLORIDE
     Dosage: 1 OTHER
     Route: 048
     Dates: start: 20221125
  17. URSODIOL [Concomitant]
     Active Substance: URSODIOL
     Dosage: 1 TABLET
     Route: 048
     Dates: start: 20221215
  18. URSODIOL [Concomitant]
     Active Substance: URSODIOL
     Route: 048
     Dates: start: 202206, end: 20221214
  19. PREDNISOLONE [Concomitant]
     Active Substance: PREDNISOLONE
     Indication: Alanine aminotransferase increased
     Dosage: 1 TABLET
     Route: 048
     Dates: start: 20221222, end: 20221229
  20. PREDNISOLONE [Concomitant]
     Active Substance: PREDNISOLONE
     Indication: Aspartate aminotransferase increased
     Dosage: 0.5 TABLET
     Route: 048
     Dates: start: 20221229, end: 20230118
  21. PHENIRAMINE [Concomitant]
     Active Substance: PHENIRAMINE
     Dosage: 1 AMPULE
     Route: 042
     Dates: start: 20221229
  22. DEXAMETHASONE SODIUM PHOSPHATE [Concomitant]
     Active Substance: DEXAMETHASONE SODIUM PHOSPHATE
     Route: 042
     Dates: start: 20221229, end: 20221229
  23. DEXAMETHASONE SODIUM PHOSPHATE [Concomitant]
     Active Substance: DEXAMETHASONE SODIUM PHOSPHATE
     Route: 042
     Dates: start: 20230105, end: 20230105
  24. DEXAMETHASONE SODIUM PHOSPHATE [Concomitant]
     Active Substance: DEXAMETHASONE SODIUM PHOSPHATE
     Route: 042
     Dates: start: 20230208, end: 20230208
  25. RAMOSETRON HYDROCHLORIDE [Concomitant]
     Active Substance: RAMOSETRON HYDROCHLORIDE
     Dosage: 1 OTHER
     Route: 042
     Dates: start: 20230105
  26. ACETYLCYSTEINE [Concomitant]
     Active Substance: ACETYLCYSTEINE
     Indication: Cough
     Dosage: 1 OTHER
     Route: 048
     Dates: start: 20230105, end: 20230118
  27. HUMAN RED BLOOD CELL [Concomitant]
     Active Substance: HUMAN RED BLOOD CELL
     Indication: Anaemia
     Dosage: 2 OTHER
     Route: 042
     Dates: start: 20230105, end: 20230105
  28. HUMAN RED BLOOD CELL [Concomitant]
     Active Substance: HUMAN RED BLOOD CELL
     Indication: Platelet count decreased
     Dosage: 2 OTHER
     Route: 042
     Dates: start: 20221215, end: 20221215
  29. HUMAN RED BLOOD CELL [Concomitant]
     Active Substance: HUMAN RED BLOOD CELL
     Dosage: 2 OTHER
     Route: 042
     Dates: start: 20230129, end: 20230129
  30. HUMAN RED BLOOD CELL [Concomitant]
     Active Substance: HUMAN RED BLOOD CELL
     Dosage: 2 OTHER
     Route: 042
     Dates: start: 20230208, end: 20230208
  31. GRASIN [Concomitant]
     Indication: Anaemia
     Dosage: STRENGTH: 300MCG?1 OTHER
     Route: 058
     Dates: start: 20230203, end: 20230203
  32. VALTREX [Concomitant]
     Active Substance: VALACYCLOVIR HYDROCHLORIDE
     Indication: Herpes zoster
     Route: 048
     Dates: start: 20230203, end: 20230208
  33. VACRAX [Concomitant]
     Indication: Herpes zoster
     Dosage: 2 OTHER
     Route: 062
     Dates: start: 20230203
  34. PANTOPRAZOLE SODIUM [Concomitant]
     Active Substance: PANTOPRAZOLE SODIUM
     Dosage: 1 OTHER
     Route: 042
     Dates: start: 20230119, end: 20230202
  35. FAMVICS [Concomitant]
     Indication: Herpes zoster
     Route: 048
     Dates: start: 20230208, end: 20230227
  36. TRAMADOL HYDROCHLORIDE [Concomitant]
     Active Substance: TRAMADOL HYDROCHLORIDE
     Indication: Herpes zoster
     Route: 048
     Dates: start: 20230208, end: 20230227
  37. NEURONTIN CAP [Concomitant]
     Indication: Herpes zoster
     Route: 048
     Dates: start: 20230208, end: 20230227
  38. SULFAMETHOXAZOLE\TRIMETHOPRIM [Concomitant]
     Active Substance: SULFAMETHOXAZOLE\TRIMETHOPRIM
     Indication: Antibiotic prophylaxis
     Dosage: 80/400MG
     Route: 048
     Dates: start: 20230208
  39. PHENIRAMINE [Concomitant]
     Active Substance: PHENIRAMINE
     Dosage: 1 AMPULE
     Route: 042
     Dates: start: 20230208, end: 20230208

REACTIONS (2)
  - Pneumonitis [Recovered/Resolved]
  - COVID-19 [Recovered/Resolved]

NARRATIVE: CASE EVENT DATE: 20230113
